FAERS Safety Report 6530758-7 (Version None)
Quarter: 2010Q1

REPORT INFORMATION
  Report Type: 
  Country: None (occurrence: None)
  Receive Date: 20100108
  Receipt Date: 20090413
  Transmission Date: 20100710
  Serious: No
  Sender: FDA-Public Use
  Company Number: A0765102A

PATIENT
  Age: 70 Year
  Sex: Female

DRUGS (2)
  1. LOVAZA [Suspect]
     Dosage: 2G TWICE PER DAY
     Route: 048
  2. UNKNOWN MEDICATION [Concomitant]

REACTIONS (4)
  - ABDOMINAL PAIN UPPER [None]
  - MENISCUS LESION [None]
  - PRODUCT QUALITY ISSUE [None]
  - PRURITUS [None]
